FAERS Safety Report 4582753-5 (Version None)
Quarter: 2005Q1

REPORT INFORMATION
  Report Type: 
  Country: None (occurrence: None)
  Receive Date: 20050126
  Receipt Date: 20041006
  Transmission Date: 20050727
  Serious: Yes (Death)
  Sender: FDA-Public Use
  Company Number: 20041000440

PATIENT
  Age: 17 Year

DRUGS (2)
  1. MEPERIDINE [Suspect]
     Dates: start: 20040101, end: 20040101
  2. PROMETHAZINE [Suspect]
     Dates: start: 20030101, end: 20030101

REACTIONS (2)
  - ADVERSE DRUG REACTION [None]
  - DEATH [None]
